FAERS Safety Report 19504780 (Version 1)
Quarter: 2021Q3

REPORT INFORMATION
  Report Type: Not Available
  Country: None (occurrence: None)
  Receive Date: 20210707
  Receipt Date: 20210707
  Transmission Date: 20211014
  Serious: No
  Sender: FDA-Public Use
  Company Number: US-AKORN-168573

PATIENT
  Age: 72 Year
  Sex: Female

DRUGS (1)
  1. PILOCARPINE HYDROCHLORIDE. [Suspect]
     Active Substance: PILOCARPINE HYDROCHLORIDE

REACTIONS (4)
  - Headache [None]
  - Pain in jaw [None]
  - Hypoaesthesia teeth [None]
  - Headache [Recovered/Resolved]

NARRATIVE: CASE EVENT DATE: 20210602
